FAERS Safety Report 6788931 (Version 6)
Quarter: 2014Q3

REPORT INFORMATION
  Report Type: Report from Study
  Country: JP (occurrence: JP)
  Receive Date: 20081016
  Receipt Date: 20140704
  Transmission Date: 20150326
  Serious: Yes (Death, Other)
  Sender: FDA-Public Use
  Company Number: PHHY2008JP24130

PATIENT
  Age: 62 Year
  Sex: Male
  Weight: 64 kg

DRUGS (15)
  1. GLAKAY [Concomitant]
     Dosage: 45 MG, UNK
     Route: 048
  2. PARIET [Concomitant]
     Active Substance: RABEPRAZOLE SODIUM
     Dosage: 10 MG, PER DAY
     Route: 048
     Dates: start: 200712
  3. NITRODERM [Concomitant]
     Active Substance: NITROGLYCERIN
     Dosage: 1 DF, UNK
     Route: 061
  4. CINAL [Concomitant]
     Active Substance: ASCORBIC ACID\CALCIUM PANTOTHENATE
     Dosage: 600 MG, UNK
     Route: 048
  5. DESFERAL [Concomitant]
     Active Substance: DEFEROXAMINE MESYLATE
     Dosage: 750 MG DAILY
  6. BLOOD TRANSFUSION [Concomitant]
     Active Substance: WHOLE BLOOD
  7. GLAKAY [Concomitant]
     Dosage: 15 MG, PER DAY
     Route: 048
  8. ALDACTONE [Concomitant]
     Active Substance: SPIRONOLACTONE
     Dosage: 50 MG, UNK
     Route: 048
  9. VITANEURIN [Concomitant]
     Dosage: 100 MG, UNK
     Route: 048
  10. ICL670A [Suspect]
     Active Substance: DEFERASIROX
     Indication: IRON OVERLOAD
     Dosage: 500 MG, PER DAY
     Route: 048
     Dates: start: 20080630
  11. LANIRAPID [Concomitant]
     Active Substance: METILDIGOXIN
     Dosage: 0.05 MG, UNK
     Route: 048
     Dates: start: 200803
  12. ICL670A [Suspect]
     Active Substance: DEFERASIROX
     Indication: APLASTIC ANAEMIA
  13. FLUITRAN [Concomitant]
     Active Substance: TRICHLORMETHIAZIDE
     Dosage: 2 MG, UNK
     Route: 048
  14. NOVORAPID [Concomitant]
     Active Substance: INSULIN ASPART
     Route: 042
  15. LUPRAC [Concomitant]
     Active Substance: TORSEMIDE
     Dosage: 2 MG, UNK
     Route: 048

REACTIONS (9)
  - Haematocrit decreased [Unknown]
  - Basophil count abnormal [Unknown]
  - Monocyte count abnormal [Unknown]
  - Subdural haematoma [Fatal]
  - Haemoglobin decreased [Unknown]
  - Platelet count decreased [Fatal]
  - Epilepsy [Fatal]
  - Red blood cell count decreased [Unknown]
  - Serum ferritin increased [Unknown]

NARRATIVE: CASE EVENT DATE: 20080826
